FAERS Safety Report 18352127 (Version 1)
Quarter: 2020Q4

REPORT INFORMATION
  Report Type: Spontaneous
  Country: FR (occurrence: FR)
  Receive Date: 20201006
  Receipt Date: 20201006
  Transmission Date: 20210114
  Serious: Yes (Death)
  Sender: FDA-Public Use
  Company Number: FR-JNJFOC-20200949528

PATIENT
  Sex: Female

DRUGS (1)
  1. ERDAFITINIB. [Suspect]
     Active Substance: ERDAFITINIB
     Indication: BREAST CANCER
     Route: 065
     Dates: start: 202004

REACTIONS (1)
  - Metastases to central nervous system [Fatal]
